FAERS Safety Report 8936900 (Version 2)
Quarter: 2013Q2

REPORT INFORMATION
  Report Type: Spontaneous
  Country: US (occurrence: US)
  Receive Date: 20121130
  Receipt Date: 20130510
  Transmission Date: 20140414
  Serious: Yes (Death, Other)
  Sender: FDA-Public Use
  Company Number: PHHY2012US109405

PATIENT
  Age: 5 Year
  Sex: Female

DRUGS (7)
  1. METHYLPREDNISOLONE [Suspect]
     Indication: IMMUNOSUPPRESSION
     Route: 042
  2. MYCOPHENOLATE MOFETIL [Suspect]
     Indication: IMMUNOSUPPRESSION
     Dosage: 800 MG/M2, UNK
  3. TACROLIMUS [Suspect]
     Indication: IMMUNOSUPPRESSION
  4. STEROIDS NOS [Suspect]
     Indication: IMMUNOSUPPRESSION
  5. SIROLIMUS [Suspect]
  6. SODIUM BICARBONATE [Concomitant]
     Dosage: 2 MEQ/KG PER DAY
  7. CANDESARTAN CILEXETIL [Concomitant]
     Dosage: 0.4 MG/KG, DAILY

REACTIONS (20)
  - Polyomavirus-associated nephropathy [Fatal]
  - Encephalitis brain stem [Fatal]
  - Renal impairment [Fatal]
  - Proteinuria [Fatal]
  - Hyperchloraemia [Fatal]
  - Renal tubular acidosis [Fatal]
  - Hyperkalaemia [Fatal]
  - Kidney fibrosis [Fatal]
  - Dysarthria [Fatal]
  - Gait disturbance [Fatal]
  - Decreased activity [Fatal]
  - Autonomic nervous system imbalance [Fatal]
  - Respiratory failure [Unknown]
  - Glomerulosclerosis [Fatal]
  - Central nervous system necrosis [Fatal]
  - Heart transplant rejection [Unknown]
  - Cardiomegaly [Unknown]
  - Metabolic acidosis [Unknown]
  - Hypertension [Unknown]
  - Pneumonia [Unknown]
